FAERS Safety Report 7815801-7 (Version None)
Quarter: 2011Q4

REPORT INFORMATION
  Report Type: 
  Country: None (occurrence: None)
  Receive Date: 20111014
  Receipt Date: 20111012
  Transmission Date: 20120403
  Serious: Yes (Other)
  Sender: FDA-Public Use
  Company Number: DE-PFIZER INC-2011244300

PATIENT
  Age: 42 Year
  Weight: 76 kg

DRUGS (2)
  1. ZIPRASIDONE HYDROCHLORIDE [Suspect]
     Dosage: 2 X 40 MG / DAY
     Route: 048
     Dates: start: 20110228
  2. ZIPRASIDONE HYDROCHLORIDE [Suspect]
     Dosage: 2 X 20 MG / DAY
     Route: 048
     Dates: start: 20110225, end: 20110227

REACTIONS (3)
  - SKIN SWELLING [None]
  - ERYTHEMA [None]
  - PAIN [None]
